FAERS Safety Report 14368714 (Version 5)
Quarter: 2022Q2

REPORT INFORMATION
  Report Type: Spontaneous
  Country: US (occurrence: US)
  Receive Date: 20180109
  Receipt Date: 20220510
  Transmission Date: 20220721
  Serious: No
  Sender: FDA-Public Use
  Company Number: US-PFIZER INC-2016476864

PATIENT
  Age: 76 Year
  Sex: Female
  Weight: 64 kg

DRUGS (6)
  1. XELJANZ XR [Suspect]
     Active Substance: TOFACITINIB CITRATE
     Indication: Rheumatoid arthritis
     Dosage: 11 MG, 1X/DAY
     Route: 048
  2. XELJANZ XR [Suspect]
     Active Substance: TOFACITINIB CITRATE
     Indication: Immunodeficiency
     Dosage: 11 MG, 1X/DAY
     Dates: start: 2017
  3. XELJANZ XR [Suspect]
     Active Substance: TOFACITINIB CITRATE
     Indication: Gastrooesophageal reflux disease
     Dosage: 11 MG, 1X/DAY
     Dates: start: 20180130
  4. XELJANZ XR [Suspect]
     Active Substance: TOFACITINIB CITRATE
     Dosage: 11 MG
  5. HYDROXYCHLOROQUINE [Concomitant]
     Active Substance: HYDROXYCHLOROQUINE
     Indication: Rheumatoid arthritis
     Dosage: 2 DF, DAILY
     Route: 048
  6. ATORVASTATIN [Concomitant]
     Active Substance: ATORVASTATIN
     Indication: Arteriosclerosis
     Dosage: 40 MG, 1X/DAY

REACTIONS (7)
  - Intentional product misuse [Unknown]
  - Nasopharyngitis [Recovered/Resolved]
  - Upper respiratory tract congestion [Unknown]
  - Pyrexia [Unknown]
  - Musculoskeletal stiffness [Unknown]
  - Influenza [Unknown]
  - Pain [Unknown]

NARRATIVE: CASE EVENT DATE: 20171201
